FAERS Safety Report 16821868 (Version 2)
Quarter: 2019Q3

REPORT INFORMATION
  Report Type: Spontaneous
  Country: IT (occurrence: IT)
  Receive Date: 20190918
  Receipt Date: 20190930
  Transmission Date: 20191005
  Serious: Yes (Hospitalization)
  Sender: FDA-Public Use
  Company Number: IT-PFIZER INC-2019398340

PATIENT
  Age: 48 Year
  Sex: Female

DRUGS (1)
  1. XANAX [Suspect]
     Active Substance: ALPRAZOLAM
     Indication: SELF-INJURIOUS IDEATION
     Dosage: 5 MG, SINGLE (TOTAL)
     Route: 048
     Dates: start: 20190614, end: 20190614

REACTIONS (3)
  - Somnolence [Unknown]
  - Intentional self-injury [Recovered/Resolved]
  - Drug abuse [Recovered/Resolved]

NARRATIVE: CASE EVENT DATE: 20190614
